FAERS Safety Report 15279707 (Version 2)
Quarter: 2019Q1

REPORT INFORMATION
  Report Type: Report from Study
  Country: US (occurrence: US)
  Receive Date: 20180815
  Receipt Date: 20190324
  Transmission Date: 20190417
  Serious: Yes (Other)
  Sender: FDA-Public Use
  Company Number: PHEH2018US033334

PATIENT
  Age: 70 Year
  Sex: Female
  Weight: 73.94 kg

DRUGS (1)
  1. TASIGNA [Suspect]
     Active Substance: NILOTINIB
     Indication: PRODUCT USED FOR UNKNOWN INDICATION
     Dosage: 200 MG, BID
     Route: 048
     Dates: start: 20180716

REACTIONS (4)
  - Chest discomfort [Unknown]
  - Chromaturia [Unknown]
  - Cough [Unknown]
  - Urticaria [Unknown]

NARRATIVE: CASE EVENT DATE: 20180716
